FAERS Safety Report 8951636 (Version 1)
Quarter: 2012Q4

REPORT INFORMATION
  Report Type: Report from Study
  Country: RU (occurrence: RU)
  Receive Date: 20121204
  Receipt Date: 20121204
  Transmission Date: 20130627
  Serious: Yes (Other)
  Sender: FDA-Public Use
  Company Number: RU-ROCHE-1164095

PATIENT
  Age: 52 Year
  Sex: Female
  Weight: 100 kg

DRUGS (4)
  1. BEVACIZUMAB [Suspect]
     Indication: COLON CANCER METASTATIC
     Route: 065
     Dates: start: 20121010, end: 20121120
  2. OXALIPLATIN [Concomitant]
     Indication: COLON CANCER METASTATIC
     Route: 041
     Dates: start: 20121010, end: 20121120
  3. LEUCOVORIN [Concomitant]
     Indication: COLON CANCER METASTATIC
     Route: 042
     Dates: start: 20121010, end: 20121120
  4. 5-FLUOROURACIL [Concomitant]
     Indication: COLON CANCER METASTATIC
     Route: 042
     Dates: start: 20121010, end: 20121120

REACTIONS (1)
  - Disease progression [Not Recovered/Not Resolved]
